FAERS Safety Report 7147981-3 (Version None)
Quarter: 2010Q4

REPORT INFORMATION
  Report Type: 
  Country: None (occurrence: None)
  Receive Date: 20101206
  Receipt Date: 20101206
  Transmission Date: 20110411
  Serious: Yes (Other)
  Sender: FDA-Public Use
  Company Number: None

PATIENT
  Age: 65 Year
  Sex: Female
  Weight: 51.7101 kg

DRUGS (1)
  1. LUMIGAN [Suspect]
     Indication: GLAUCOMA
     Dosage: ONE ONCE PER DAY OPHTHALMIC
     Route: 047
     Dates: start: 20101202, end: 20101202

REACTIONS (3)
  - DRY EYE [None]
  - EYE PAIN [None]
  - MYDRIASIS [None]
